FAERS Safety Report 8764432 (Version 1)
Quarter: 2012Q4

REPORT INFORMATION
  Report Type: 
  Country: US (occurrence: US)
  Receive Date: 20120831
  Receipt Date: 20120831
  Transmission Date: 20130627
  Serious: Yes (Other)
  Sender: FDA-Public Use
  Company Number: US-ABBOTT-12P-163-0971170-00

PATIENT
  Age: 60 Year
  Sex: Male

DRUGS (1)
  1. LUPRON DEPOT 45 MG [Suspect]
     Indication: PROSTATE CANCER
     Route: 030
     Dates: start: 20120810, end: 20120810

REACTIONS (5)
  - Generalised erythema [Not Recovered/Not Resolved]
  - Pruritus generalised [Not Recovered/Not Resolved]
  - Dyspnoea [Not Recovered/Not Resolved]
  - Dyspnoea [Not Recovered/Not Resolved]
  - Dysphonia [Not Recovered/Not Resolved]
